FAERS Safety Report 26074264 (Version 1)
Quarter: 2025Q4

REPORT INFORMATION
  Report Type: Spontaneous
  Country: CN (occurrence: CN)
  Receive Date: 20251121
  Receipt Date: 20251121
  Transmission Date: 20260118
  Serious: Yes (Other)
  Sender: STRIDES
  Company Number: CN-STRIDES ARCOLAB LIMITED-2025SP014428

PATIENT
  Age: 82 Year
  Sex: Female
  Weight: 47.5 kg

DRUGS (5)
  1. PREDNISONE [Suspect]
     Active Substance: PREDNISONE
     Indication: Autoimmune haemolytic anaemia
     Dosage: HIGH DOSE
     Route: 048
     Dates: start: 20230421, end: 20230426
  2. PREDNISONE [Suspect]
     Active Substance: PREDNISONE
     Dosage: DOSE REDUCED
     Route: 048
     Dates: start: 20230426, end: 20230505
  3. PREDNISONE [Suspect]
     Active Substance: PREDNISONE
     Dosage: DOSE REDUCED
     Route: 048
     Dates: start: 20230505, end: 20230525
  4. PREDNISONE [Suspect]
     Active Substance: PREDNISONE
     Dosage: DOSE REDUCED
     Route: 048
     Dates: start: 20230525, end: 20230725
  5. TORIPALIMAB [Concomitant]
     Active Substance: TORIPALIMAB
     Indication: Colorectal cancer
     Dosage: EVERY 14 DAYS
     Route: 065
     Dates: start: 20230405, end: 20230421

REACTIONS (2)
  - Hypervolaemia [Recovered/Resolved]
  - Diabetes mellitus inadequate control [Recovered/Resolved]

NARRATIVE: CASE EVENT DATE: 20230426
